FAERS Safety Report 4766633-8 (Version None)
Quarter: 2005Q3

REPORT INFORMATION
  Report Type: 
  Country: None (occurrence: None)
  Receive Date: 20050912
  Receipt Date: 20050831
  Transmission Date: 20060218
  Serious: Yes (Other)
  Sender: FDA-Public Use
  Company Number: 2005121460

PATIENT
  Age: 49 Year
  Sex: Female

DRUGS (2)
  1. NORVASC [Suspect]
     Indication: ILL-DEFINED DISORDER
  2. UNIVASC [Suspect]
     Indication: ILL-DEFINED DISORDER

REACTIONS (6)
  - ASTHMA [None]
  - BLOOD PRESSURE INCREASED [None]
  - COUGH [None]
  - MALAISE [None]
  - MULTIPLE ALLERGIES [None]
  - SINUS DISORDER [None]
